FAERS Safety Report 23114312 (Version 1)
Quarter: 2023Q4

REPORT INFORMATION
  Report Type: Spontaneous
  Country: US (occurrence: US)
  Receive Date: 20231027
  Receipt Date: 20231027
  Transmission Date: 20240109
  Serious: Yes (Other)
  Sender: FDA-Public Use
  Company Number: US-ASTELLAS-2023US032084

PATIENT
  Age: 73 Year
  Sex: Female

DRUGS (4)
  1. LEXISCAN [Suspect]
     Active Substance: REGADENOSON
     Indication: Product used for unknown indication
     Dosage: 0.4 MG/5 ML, UNKNOWN FREQ.
     Route: 065
     Dates: start: 20231018, end: 20231018
  2. LEXISCAN [Suspect]
     Active Substance: REGADENOSON
     Indication: Product used for unknown indication
     Dosage: 0.4 MG/5 ML, UNKNOWN FREQ.
     Route: 065
     Dates: start: 20231018, end: 20231018
  3. LEXISCAN [Suspect]
     Active Substance: REGADENOSON
     Indication: Product used for unknown indication
     Dosage: 0.4 MG/5 ML, UNKNOWN FREQ.
     Route: 065
     Dates: start: 20231018, end: 20231018
  4. LEXISCAN [Suspect]
     Active Substance: REGADENOSON
     Indication: Product used for unknown indication
     Dosage: 0.4 MG/5 ML, UNKNOWN FREQ.
     Route: 065
     Dates: start: 20231018, end: 20231018

REACTIONS (6)
  - Feeling cold [Unknown]
  - Dyspnoea [Recovering/Resolving]
  - Pain [Unknown]
  - Tremor [Unknown]
  - Headache [Unknown]
  - Chest pain [Unknown]

NARRATIVE: CASE EVENT DATE: 20231018
